FAERS Safety Report 5974998-4 (Version None)
Quarter: 2008Q4

REPORT INFORMATION
  Report Type: 
  Country: None (occurrence: None)
  Receive Date: 20081128
  Receipt Date: 20081121
  Transmission Date: 20090506
  Serious: Yes (Death)
  Sender: FDA-Public Use
  Company Number: ENTC2008-0395

PATIENT
  Age: 87 Year
  Sex: Female

DRUGS (1)
  1. STALEVO 100 [Suspect]
     Indication: PARKINSON'S DISEASE
     Dosage: 2 TABLETS PER DAY (100/25/200MG)
     Route: 048
     Dates: start: 20050901

REACTIONS (1)
  - PARKINSON'S DISEASE [None]
